FAERS Safety Report 15669652 (Version 2)
Quarter: 2018Q4

REPORT INFORMATION
  Report Type: Report from Study
  Country: None (occurrence: US)
  Receive Date: 20181129
  Receipt Date: 20181203
  Transmission Date: 20190205
  Serious: Yes (Death, Hospitalization, Other)
  Sender: FDA-Public Use
  Company Number: US-ABBVIE-18S-163-2573252-00

PATIENT
  Age: 74 Year
  Sex: Male
  Weight: 59.02 kg

DRUGS (1)
  1. CREON [Suspect]
     Active Substance: PANCRELIPASE AMYLASE\PANCRELIPASE LIPASE\PANCRELIPASE PROTEASE
     Indication: PANCREATITIS CHRONIC
     Route: 048

REACTIONS (7)
  - Cerebrovascular accident [Fatal]
  - Asthenia [Not Recovered/Not Resolved]
  - Chronic lymphocytic leukaemia [Fatal]
  - B-cell small lymphocytic lymphoma [Fatal]
  - Atrial fibrillation [Fatal]
  - Pneumonia [Unknown]
  - Blood count abnormal [Not Recovered/Not Resolved]

NARRATIVE: CASE EVENT DATE: 2018
